FAERS Safety Report 6874979-2 (Version None)
Quarter: 2010Q2

REPORT INFORMATION
  Report Type: 
  Country: None (occurrence: None)
  Receive Date: 20100616
  Receipt Date: 20090218
  Transmission Date: 20101027
  Serious: Yes (Other)
  Sender: FDA-Public Use
  Company Number: 1000001757

PATIENT
  Age: 42 Year
  Sex: Male

DRUGS (8)
  1. NAMENDA [Suspect]
     Indication: MEMORY IMPAIRMENT
     Dosage: SEE IMAGE
     Route: 048
     Dates: start: 20080701
  2. CYMBALTA (30 MILLIGRAM, TABLETS) [Concomitant]
  3. ULTRAM (50 MILLIGRAM, TABLETS) [Concomitant]
  4. NAPROXEN [Concomitant]
  5. FLEXERIL (10 MILLIGRAM, TABLETS) [Concomitant]
  6. VALIUM (5 MILLGRAM, TABLETS) [Concomitant]
  7. MAXZIDE [Concomitant]
  8. NORVASC [Concomitant]

REACTIONS (3)
  - PAIN [None]
  - SUICIDAL IDEATION [None]
  - THINKING ABNORMAL [None]
